FAERS Safety Report 7393719-4 (Version None)
Quarter: 2011Q2

REPORT INFORMATION
  Report Type: 
  Country: None (occurrence: None)
  Receive Date: 20110405
  Receipt Date: 20110323
  Transmission Date: 20111010
  Serious: Yes (Other)
  Sender: FDA-Public Use
  Company Number: GB-JNJFOC-2010003256

PATIENT
  Sex: Female

DRUGS (1)
  1. NICORETTE [Suspect]
     Indication: PRODUCT USED FOR UNKNOWN INDICATION
     Dosage: ABOUT 9 TO 10 PIECES A DAY, CURRENTLY SIX PIECES PER DAY
     Route: 048

REACTIONS (8)
  - INCORRECT DRUG ADMINISTRATION DURATION [None]
  - DRY SKIN [None]
  - SKIN ODOUR ABNORMAL [None]
  - INSOMNIA [None]
  - DEPENDENCE [None]
  - SWELLING FACE [None]
  - ALOPECIA [None]
  - PRODUCT QUALITY ISSUE [None]
